FAERS Safety Report 6111820-X (Version None)
Quarter: 2009Q1

REPORT INFORMATION
  Report Type: 
  Country: None (occurrence: None)
  Receive Date: 20090311
  Receipt Date: 20090302
  Transmission Date: 20090719
  Serious: Yes (Hospitalization)
  Sender: FDA-Public Use
  Company Number: JP-BAXTER-2009BH003670

PATIENT
  Age: 70 Year
  Sex: Male

DRUGS (5)
  1. ENDOXAN BAXTER [Suspect]
     Indication: HENOCH-SCHONLEIN PURPURA
     Route: 041
     Dates: start: 20080101
  2. ENDOXAN BAXTER [Suspect]
     Indication: NEPHRITIS
     Route: 041
     Dates: start: 20080101
  3. PREDONINE [Suspect]
     Indication: HENOCH-SCHONLEIN PURPURA
     Route: 048
     Dates: start: 20080101
  4. PREDONINE [Suspect]
     Indication: NEPHRITIS
     Route: 048
     Dates: start: 20080101
  5. BAKTAR [Suspect]
     Indication: ANTIFUNGAL PROPHYLAXIS
     Route: 048
     Dates: start: 20080709, end: 20090108

REACTIONS (3)
  - ASCITES [None]
  - HEPATIC FUNCTION ABNORMAL [None]
  - TUMOUR MARKER INCREASED [None]
